FAERS Safety Report 9190239 (Version 1)
Quarter: 2013Q1

REPORT INFORMATION
  Report Type: Spontaneous
  Country: US (occurrence: None)
  Receive Date: 20120703
  Receipt Date: 20120703
  Transmission Date: 20140127
  Serious: No
  Sender: FDA-Public Use
  Company Number: PHEH2012US005861

PATIENT
  Sex: Male

DRUGS (6)
  1. GILENYA (FTY) CAPSULE [Suspect]
     Route: 048
  2. CYMBALTA (DULOXETINE HYDROCHLORIDE) CAPSULE [Concomitant]
  3. BACLOFEN (BACLOFEN) TABLET [Concomitant]
  4. OXYCONTIN (OXCODONE HYDROCHLORIDE) TABLET [Concomitant]
  5. LYRICA (PREGABALIN) CAPSULE [Concomitant]
  6. ZOLOFT (SERTRALINE HYDROCHLORIDE) TABLET [Concomitant]

REACTIONS (2)
  - Hypoaesthesia [None]
  - Paraesthesia [None]
